FAERS Safety Report 14896880 (Version 1)
Quarter: 2018Q2

REPORT INFORMATION
  Report Type: Spontaneous
  Country: US (occurrence: US)
  Receive Date: 20180427
  Receipt Date: 20180427
  Transmission Date: 20180711
  Serious: Yes (Disabling)
  Sender: FDA-Public Use
  Company Number: None

PATIENT
  Age: 64 Year
  Sex: Female
  Weight: 76.5 kg

DRUGS (14)
  1. AMPYRA [Concomitant]
     Active Substance: DALFAMPRIDINE
  2. ZINBRYTA [Suspect]
     Active Substance: DACLIZUMAB
     Indication: MULTIPLE SCLEROSIS
     Dosage: ?          QUANTITY:1 INJECTION(S);OTHER FREQUENCY:1/MOS;OTHER ROUTE:SUBCUTANEOUS INJECTION?
     Route: 058
     Dates: start: 20170602, end: 20180302
  3. FLAXSEED [Concomitant]
     Active Substance: FLAX SEED
  4. PRAMIPEXOLE. [Concomitant]
     Active Substance: PRAMIPEXOLE
  5. FISH OIL [Concomitant]
     Active Substance: FISH OIL
  6. LOSARTAN. [Concomitant]
     Active Substance: LOSARTAN
  7. PREDNISONE. [Concomitant]
     Active Substance: PREDNISONE
  8. MULTI [Concomitant]
  9. VITAMIN D [Concomitant]
     Active Substance: CHOLECALCIFEROL
  10. BACLOFEN. [Concomitant]
     Active Substance: BACLOFEN
  11. CEPHALEXIN. [Concomitant]
     Active Substance: CEPHALEXIN
  12. TUMMERIC [Concomitant]
  13. ZYRTEC [Concomitant]
     Active Substance: CETIRIZINE HYDROCHLORIDE
  14. MUCINEX [Concomitant]
     Active Substance: GUAIFENESIN

REACTIONS (6)
  - Alopecia [None]
  - Skin reaction [None]
  - Depression [None]
  - Thyroid mass [None]
  - Lymphadenopathy [None]
  - Drug effect decreased [None]

NARRATIVE: CASE EVENT DATE: 20180201
